FAERS Safety Report 5214851-7 (Version None)
Quarter: 2006Q4

REPORT INFORMATION
  Report Type: 
  Country: None (occurrence: None)
  Receive Date: 20061107
  Receipt Date: 20060612
  Transmission Date: 20070319
  Serious: No
  Sender: FDA-Public Use
  Company Number: 200613934BWH

PATIENT
  Age: 69 Year
  Sex: Male

DRUGS (2)
  1. LEVITRA [Suspect]
     Indication: DRUG USE FOR UNKNOWN INDICATION
     Dosage: 5 MG, OW, ORAL; 10 MG, OW, ORAL; 20 MG, OW, ORAL; OW
     Route: 048
  2. LEVITRA [Suspect]
     Indication: DRUG USE FOR UNKNOWN INDICATION
     Dosage: 5 MG, OW, ORAL; 10 MG, OW, ORAL; 20 MG, OW, ORAL; OW
     Route: 048
     Dates: start: 20020101

REACTIONS (1)
  - DRUG INEFFECTIVE [None]
